FAERS Safety Report 25279748 (Version 1)
Quarter: 2025Q2

REPORT INFORMATION
  Report Type: Spontaneous
  Country: GB (occurrence: GB)
  Receive Date: 20250507
  Receipt Date: 20250507
  Transmission Date: 20250717
  Serious: Yes (Other)
  Sender: LUNDBECK
  Company Number: None

PATIENT
  Age: 244 Day
  Sex: Female
  Weight: 8 kg

DRUGS (2)
  1. VIGABATRIN [Suspect]
     Active Substance: VIGABATRIN
     Indication: Infantile spasms
     Dosage: 160 MG/KG, QD
     Dates: start: 20250312
  2. PREDNISOLONE [Concomitant]
     Active Substance: PREDNISOLONE
     Indication: Product used for unknown indication
     Dates: start: 20250312, end: 20250326

REACTIONS (5)
  - Fontanelle bulging [Recovering/Resolving]
  - Unresponsive to stimuli [Recovering/Resolving]
  - Somnolence [Recovering/Resolving]
  - Seizure [Recovering/Resolving]
  - Medication error [Unknown]
